FAERS Safety Report 7555925-5 (Version None)
Quarter: 2011Q2

REPORT INFORMATION
  Report Type: 
  Country: None (occurrence: None)
  Receive Date: 20110618
  Receipt Date: 20110606
  Transmission Date: 20111010
  Serious: Yes (Other)
  Sender: FDA-Public Use
  Company Number: US-ELI_LILLY_AND_COMPANY-US200910004262

PATIENT
  Sex: Female

DRUGS (5)
  1. DIOVAN [Concomitant]
     Route: 065
  2. FORTEO [Suspect]
     Dosage: 20 UG, QD
     Route: 065
     Dates: end: 20110501
  3. CALCIUM CARBONATE [Concomitant]
     Route: 065
  4. FORTEO [Suspect]
     Indication: OSTEOPOROSIS
     Dosage: 20 UG, QD
     Route: 065
     Dates: start: 20091001
  5. VITAMIN TAB [Concomitant]
     Route: 065

REACTIONS (4)
  - METASTASES TO LYMPH NODES [None]
  - BILE DUCT OBSTRUCTION [None]
  - FATIGUE [None]
  - PANCREATIC CARCINOMA [None]
